FAERS Safety Report 8678128 (Version 2)
Quarter: 2013Q2

REPORT INFORMATION
  Report Type: Spontaneous
  Country: US (occurrence: None)
  Receive Date: 20120406
  Receipt Date: 20120705
  Transmission Date: 20140414
  Serious: No
  Sender: FDA-Public Use
  Company Number: US-CYPR-2011-000079

PATIENT
  Age: 55 Year
  Sex: Male
  Weight: 82.56 kg

DRUGS (9)
  1. CLOPIDOGREL [Suspect]
     Indication: ANTIPLATELET THERAPY
     Dosage: 75 MG, ORAL
     Route: 048
     Dates: start: 20110117, end: 20111205
  2. ASPIRIN [Suspect]
     Indication: CORONARY ARTERY DISEASE
     Dosage: 325 MG, ORAL
     Route: 048
     Dates: start: 20091223
  3. BYSTOLIC [Concomitant]
  4. VASOTEC [Concomitant]
  5. PRAVACHOL [Concomitant]
  6. VICODIN [Concomitant]
  7. ZOCOR [Concomitant]
  8. AMITRIPTYLINE [Concomitant]
  9. CYPHER STENT [Concomitant]

REACTIONS (1)
  - COLON CANCER [None]
